FAERS Safety Report 5237859-4 (Version None)
Quarter: 2007Q1

REPORT INFORMATION
  Report Type: 
  Country: None (occurrence: None)
  Receive Date: 20070214
  Receipt Date: 20070130
  Transmission Date: 20070707
  Serious: Yes (Other)
  Sender: FDA-Public Use
  Company Number: US-SHR-US-2006-040833

PATIENT
  Age: 41 Year
  Sex: Female

DRUGS (1)
  1. BETASERON [Suspect]
     Dosage: 8 MIU, EVERY 2D
     Route: 058
     Dates: start: 20060104

REACTIONS (7)
  - ABDOMINAL PAIN UPPER [None]
  - ANAEMIA [None]
  - CARPAL TUNNEL SYNDROME [None]
  - CHOLELITHIASIS [None]
  - CROHN'S DISEASE [None]
  - GAIT DISTURBANCE [None]
  - NAUSEA [None]
